FAERS Safety Report 21432242 (Version 1)
Quarter: 2022Q4

REPORT INFORMATION
  Report Type: Report from Study
  Country: CA (occurrence: CA)
  Receive Date: 20221009
  Receipt Date: 20221009
  Transmission Date: 20230112
  Serious: Yes (Hospitalization, Other)
  Sender: FDA-Public Use
  Company Number: CA-ABBVIE-4142846

PATIENT
  Age: 39 Year
  Sex: Female

DRUGS (1)
  1. RINVOQ [Suspect]
     Active Substance: UPADACITINIB
     Indication: Dermatitis atopic
     Route: 048
     Dates: start: 20220525, end: 20220924

REACTIONS (3)
  - Peritonsillar abscess [Recovered/Resolved]
  - Rash [Recovering/Resolving]
  - Herpes simplex reactivation [Unknown]

NARRATIVE: CASE EVENT DATE: 20220821
